FAERS Safety Report 14124419 (Version 1)
Quarter: 2017Q4

REPORT INFORMATION
  Report Type: Report from Study
  Country: CA (occurrence: CA)
  Receive Date: 20171025
  Receipt Date: 20171025
  Transmission Date: 20180321
  Serious: Yes (Other)
  Sender: FDA-Public Use
  Company Number: CA-JNJFOC-20171026076

PATIENT
  Age: 20 Year
  Sex: Female
  Weight: 51 kg

DRUGS (2)
  1. REMICADE [Suspect]
     Active Substance: INFLIXIMAB
     Indication: CROHN^S DISEASE
     Dosage: STRENGTH = 300 MG
     Route: 042
     Dates: start: 2015
  2. DILAUDID [Suspect]
     Active Substance: HYDROMORPHONE HYDROCHLORIDE
     Indication: PAIN MANAGEMENT
     Route: 065

REACTIONS (5)
  - Constipation [Recovering/Resolving]
  - Spinal fracture [Recovering/Resolving]
  - Off label use [Unknown]
  - Road traffic accident [Unknown]
  - Product use issue [Unknown]

NARRATIVE: CASE EVENT DATE: 2015
